FAERS Safety Report 11199134 (Version 1)
Quarter: 2015Q2

REPORT INFORMATION
  Report Type: Spontaneous
  Country: US (occurrence: None)
  Receive Date: 20150608
  Receipt Date: 20150608
  Transmission Date: 20150821
  Serious: No
  Sender: FDA-Public Use
  Company Number: 2015TUS003801

PATIENT
  Age: 49 Year
  Sex: Female
  Weight: 140.6 kg

DRUGS (10)
  1. CARBAMAZEPINE. [Concomitant]
     Active Substance: CARBAMAZEPINE
  2. ASPIRIN (ACETYLSALICYLIC ACID) [Concomitant]
     Active Substance: ASPIRIN
  3. BRINTELLIX [Suspect]
     Active Substance: VORTIOXETINE HYDROBROMIDE
     Indication: MAJOR DEPRESSION
     Route: 048
     Dates: start: 20150323
  4. CARVEDILOL. [Concomitant]
     Active Substance: CARVEDILOL
  5. LOSARTAN POTASSIUM. [Concomitant]
     Active Substance: LOSARTAN POTASSIUM
  6. XANAX [Concomitant]
     Active Substance: ALPRAZOLAM
  7. SYMBICORT [Concomitant]
     Active Substance: BUDESONIDE\FORMOTEROL FUMARATE DIHYDRATE
  8. HYDROCHLOROTHIAZIDE. [Concomitant]
     Active Substance: HYDROCHLOROTHIAZIDE
  9. CLONIDINE. [Concomitant]
     Active Substance: CLONIDINE
  10. NITROSTAT (GLYCERYL TRINITRATE) [Concomitant]

REACTIONS (2)
  - Nausea [None]
  - Tinnitus [None]

NARRATIVE: CASE EVENT DATE: 20150323
